FAERS Safety Report 17462692 (Version 2)
Quarter: 2020Q2

REPORT INFORMATION
  Report Type: Report from Study
  Country: GB (occurrence: GB)
  Receive Date: 20200226
  Receipt Date: 20200421
  Transmission Date: 20200713
  Serious: Yes (Other)
  Sender: FDA-Public Use
  Company Number: GB-UCBSA-2019043423

PATIENT
  Sex: Male

DRUGS (2)
  1. CERTOLIZUMAB PEGOL PSA AUTOCLICKS [Suspect]
     Active Substance: CERTOLIZUMAB PEGOL
     Indication: PSORIATIC ARTHROPATHY
     Dosage: 400 MILLIGRAM, EV 2 WEEKS(QOW)
     Route: 058
     Dates: start: 20191003
  2. CERTOLIZUMAB PEGOL PSA AUTOCLICKS [Suspect]
     Active Substance: CERTOLIZUMAB PEGOL
     Dosage: 200 MILLIGRAM, EV 2 WEEKS(QOW)
     Route: 058

REACTIONS (10)
  - Syncope [Unknown]
  - Product storage error [Unknown]
  - Hepatic failure [Unknown]
  - Product dose omission [Unknown]
  - Haematemesis [Unknown]
  - Intentional product misuse [Unknown]
  - Nasopharyngitis [Recovered/Resolved]
  - Adverse reaction [Unknown]
  - Psoriatic arthropathy [Unknown]
  - Pyrexia [Recovered/Resolved]
